FAERS Safety Report 5973445-6 (Version None)
Quarter: 2008Q4

REPORT INFORMATION
  Report Type: 
  Country: None (occurrence: None)
  Receive Date: 20081201
  Receipt Date: 20080115
  Transmission Date: 20090506
  Serious: No
  Sender: FDA-Public Use
  Company Number: US-AMGEN-KDL260855

PATIENT
  Sex: Female

DRUGS (1)
  1. ENBREL [Suspect]
     Indication: PSORIASIS
     Route: 058
     Dates: start: 20020701

REACTIONS (11)
  - ABDOMINAL PAIN UPPER [None]
  - ABNORMAL SENSATION IN EYE [None]
  - ANAL FISSURE [None]
  - COUGH [None]
  - DIZZINESS [None]
  - DRUG HYPERSENSITIVITY [None]
  - NAUSEA [None]
  - PHOTOPHOBIA [None]
  - PSORIASIS [None]
  - URTICARIA [None]
  - VOMITING [None]
